FAERS Safety Report 8206478-X (Version None)
Quarter: 2012Q1

REPORT INFORMATION
  Report Type: 
  Country: None (occurrence: None)
  Receive Date: 20120313
  Receipt Date: 20120307
  Transmission Date: 20120608
  Serious: Yes (Other)
  Sender: FDA-Public Use
  Company Number: US-FRI-1000028745

PATIENT
  Sex: Female
  Weight: 101.8 kg

DRUGS (6)
  1. BYSTOLIC [Suspect]
     Indication: HYPERTENSION
     Dosage: 5 MG
     Route: 048
     Dates: start: 20110525, end: 20110528
  2. PHENOBARBITAL TAB [Concomitant]
     Indication: CONVULSION
  3. NORVASC [Suspect]
     Indication: HYPERTENSION
     Dosage: 5 MG
     Route: 048
  4. NORVASC [Suspect]
     Indication: CARDIAC DISORDER
  5. DIGOXIN [Concomitant]
     Indication: HEART RATE IRREGULAR
     Dosage: 0.125 MG
     Route: 048
  6. TOPAMAX [Concomitant]
     Indication: CONVULSION
     Dosage: 100 MG
     Route: 048

REACTIONS (8)
  - UNEVALUABLE EVENT [None]
  - OEDEMA [None]
  - DYSPNOEA [None]
  - OEDEMA PERIPHERAL [None]
  - PULMONARY OEDEMA [None]
  - ABDOMINAL DISTENSION [None]
  - COUGH [None]
  - INCREASED UPPER AIRWAY SECRETION [None]
